FAERS Safety Report 10162942 (Version 1)
Quarter: 2014Q2

REPORT INFORMATION
  Report Type: Spontaneous
  Country: US (occurrence: US)
  Receive Date: 20140509
  Receipt Date: 20140509
  Transmission Date: 20141212
  Serious: No
  Sender: FDA-Public Use
  Company Number: US-PFIZER INC-2014126366

PATIENT
  Age: 71 Year
  Sex: Female
  Weight: 81.63 kg

DRUGS (2)
  1. CELEBREX [Suspect]
     Indication: SPONDYLITIS
     Dosage: UNK, DAILY
     Dates: end: 2014
  2. PREMARIN [Suspect]
     Indication: VULVOVAGINAL DRYNESS
     Dosage: UNK, WEEKLY
     Route: 067
     Dates: start: 2013, end: 2014

REACTIONS (3)
  - Fall [Unknown]
  - Back injury [Unknown]
  - Joint swelling [Unknown]
